FAERS Safety Report 14055800 (Version 2)
Quarter: 2018Q1

REPORT INFORMATION
  Report Type: Spontaneous
  Country: FR (occurrence: FR)
  Receive Date: 20171006
  Receipt Date: 20180323
  Transmission Date: 20180508
  Serious: Yes (Other)
  Sender: FDA-Public Use
  Company Number: FR-MERCK KGAA-2029002

PATIENT
  Age: 48 Year
  Sex: Female
  Weight: 71 kg

DRUGS (1)
  1. NOVOTHYROX [Suspect]
     Active Substance: LEVOTHYROXINE SODIUM
     Indication: THYROID ATROPHY
     Route: 048

REACTIONS (19)
  - Fatigue [Not Recovered/Not Resolved]
  - Arthralgia [None]
  - Disturbance in attention [None]
  - High density lipoprotein increased [None]
  - Constipation [Not Recovered/Not Resolved]
  - Onychoclasis [None]
  - Nervousness [None]
  - Anxiety [Not Recovered/Not Resolved]
  - Headache [Not Recovered/Not Resolved]
  - Anger [None]
  - Depression [None]
  - Pain in extremity [Not Recovered/Not Resolved]
  - Anhedonia [None]
  - Personal relationship issue [None]
  - Apathy [None]
  - Alopecia [None]
  - Blood thyroid stimulating hormone normal [Recovered/Resolved]
  - Irritability [None]
  - Palpitations [None]

NARRATIVE: CASE EVENT DATE: 2017
